FAERS Safety Report 18517210 (Version 18)
Quarter: 2025Q1

REPORT INFORMATION
  Report Type: Report from Study
  Country: US (occurrence: US)
  Receive Date: 20201118
  Receipt Date: 20250306
  Transmission Date: 20250408
  Serious: Yes (Other)
  Sender: TAKEDA
  Company Number: US-TAKEDA-US202028232

PATIENT
  Age: 54 Year
  Sex: Female
  Weight: 89 kg

DRUGS (39)
  1. HUMAN IMMUNOGLOBULIN G [Suspect]
     Active Substance: HUMAN IMMUNOGLOBULIN G
     Indication: Selective IgG subclass deficiency
     Dosage: 10 GRAM, Q2WEEKS
     Dates: start: 20200702
  2. HUMAN IMMUNOGLOBULIN G [Suspect]
     Active Substance: HUMAN IMMUNOGLOBULIN G
     Indication: Multiple sclerosis
     Dosage: 12 GRAM, Q2WEEKS
  3. HUMAN IMMUNOGLOBULIN G [Suspect]
     Active Substance: HUMAN IMMUNOGLOBULIN G
     Indication: Major depression
  4. HUMAN IMMUNOGLOBULIN G [Suspect]
     Active Substance: HUMAN IMMUNOGLOBULIN G
     Indication: Generalised anxiety disorder
  5. HUMAN IMMUNOGLOBULIN G [Suspect]
     Active Substance: HUMAN IMMUNOGLOBULIN G
     Indication: Mitral valve stenosis
  6. WEGOVY [Suspect]
     Active Substance: SEMAGLUTIDE
     Indication: Product used for unknown indication
  7. VUMERITY [Suspect]
     Active Substance: DIROXIMEL FUMARATE
     Indication: Product used for unknown indication
  8. EPINEPHRINE [Concomitant]
     Active Substance: EPINEPHRINE
  9. ACETAMINOPHEN [Concomitant]
     Active Substance: ACETAMINOPHEN
  10. DULOXETINE HYDROCHLORIDE [Concomitant]
     Active Substance: DULOXETINE HYDROCHLORIDE
  11. NASALCROM [Concomitant]
     Active Substance: CROMOLYN SODIUM
  12. SINGULAIR [Concomitant]
     Active Substance: MONTELUKAST SODIUM
  13. VITAMIN D3 [Concomitant]
     Active Substance: CHOLECALCIFEROL
  14. LIPITOR [Concomitant]
     Active Substance: ATORVASTATIN CALCIUM
  15. BIOTIN [Concomitant]
     Active Substance: BIOTIN
  16. BUPROPION HYDROCHLORIDE [Concomitant]
     Active Substance: BUPROPION HYDROCHLORIDE
  17. ATIVAN [Concomitant]
     Active Substance: LORAZEPAM
  18. ORACEA [Concomitant]
     Active Substance: DOXYCYCLINE
  19. GABAPENTIN [Concomitant]
     Active Substance: GABAPENTIN
  20. LIDOCAINE [Concomitant]
     Active Substance: LIDOCAINE
  21. NAPROXEN [Concomitant]
     Active Substance: NAPROXEN
  22. CETIRIZINE HYDROCHLORIDE [Concomitant]
     Active Substance: CETIRIZINE HYDROCHLORIDE
  23. XHANCE [Concomitant]
     Active Substance: FLUTICASONE PROPIONATE
  24. PROGESTERONE [Concomitant]
     Active Substance: PROGESTERONE
  25. PRILOSEC OTC [Concomitant]
     Active Substance: OMEPRAZOLE MAGNESIUM
  26. ESTRADIOL [Concomitant]
     Active Substance: ESTRADIOL
  27. AUBAGIO [Concomitant]
     Active Substance: TERIFLUNOMIDE
  28. CETIRIZINE [Concomitant]
     Active Substance: CETIRIZINE HYDROCHLORIDE
  29. DIPHENHYDRAMINE [Concomitant]
     Active Substance: DIPHENHYDRAMINE
  30. Lmx [Concomitant]
  31. ZYRTEC [Concomitant]
     Active Substance: CETIRIZINE HYDROCHLORIDE
  32. DULOXETINE [Concomitant]
     Active Substance: DULOXETINE
  33. CHLORTHALIDONE [Concomitant]
     Active Substance: CHLORTHALIDONE
  34. BUPROPION [Concomitant]
     Active Substance: BUPROPION
  35. VITAMIN B12 [Concomitant]
     Active Substance: CYANOCOBALAMIN
  36. NORCO [Concomitant]
     Active Substance: ACETAMINOPHEN\HYDROCODONE BITARTRATE
  37. VITAMIN B [Concomitant]
     Active Substance: VITAMIN B
  38. ACETAMINOPHEN\HYDROCODONE [Concomitant]
     Active Substance: ACETAMINOPHEN\HYDROCODONE
  39. DIPHENHYDRAMINE HYDROCHLORIDE [Concomitant]
     Active Substance: DIPHENHYDRAMINE HYDROCHLORIDE

REACTIONS (12)
  - Omphalitis [Unknown]
  - Diarrhoea [Unknown]
  - Sinusitis [Unknown]
  - Nasopharyngitis [Recovered/Resolved]
  - Viral infection [Unknown]
  - Sinus disorder [Unknown]
  - Inappropriate schedule of product administration [Unknown]
  - Product dose omission issue [Unknown]
  - Constipation [Unknown]
  - Product use in unapproved indication [Unknown]
  - Root canal infection [Unknown]
  - Sinusitis fungal [Unknown]

NARRATIVE: CASE EVENT DATE: 20200702
